FAERS Safety Report 9298688 (Version 1)
Quarter: 2013Q2

REPORT INFORMATION
  Report Type: Spontaneous
  Country: IT (occurrence: IT)
  Receive Date: 20130520
  Receipt Date: 20130520
  Transmission Date: 20140414
  Serious: Yes (Hospitalization, Other)
  Sender: FDA-Public Use
  Company Number: IT-BAYER-2013-060468

PATIENT
  Age: 50 Year
  Sex: Male

DRUGS (2)
  1. KETOPROFEN (SYSTEMIC FORMULATION) [Suspect]
     Indication: NECK PAIN
     Dosage: 200 MG/DAY FOR 3 DAYS
  2. MINIRIN [Interacting]
     Indication: DIABETES INSIPIDUS
     Dosage: 60 MG, QID
     Route: 060

REACTIONS (7)
  - Water intoxication [Recovered/Resolved]
  - Hyponatraemia [Recovered/Resolved]
  - Grand mal convulsion [Recovered/Resolved]
  - Coma [Recovered/Resolved]
  - Lactic acidosis [Recovered/Resolved]
  - Rhabdomyolysis [None]
  - Drug interaction [None]
